FAERS Safety Report 8505450-X (Version None)
Quarter: 2012Q3

REPORT INFORMATION
  Report Type: 
  Country: None (occurrence: None)
  Receive Date: 20120712
  Receipt Date: 20120706
  Transmission Date: 20120928
  Serious: Yes (Other)
  Sender: FDA-Public Use
  Company Number: US-PFIZER INC-2012085796

PATIENT
  Sex: Male

DRUGS (11)
  1. METFORMIN [Concomitant]
     Indication: DIABETES MELLITUS
     Dosage: 2000 MG, 1X/DAY
  2. INSULIN DETEMIR [Concomitant]
     Indication: DIABETES MELLITUS
     Dosage: 90 UNITS, UNK
  3. TRICOR [Concomitant]
     Indication: BLOOD TRIGLYCERIDES INCREASED
     Dosage: UNK
  4. SIMVASTATIN [Concomitant]
     Indication: BLOOD CHOLESTEROL INCREASED
     Dosage: UNK
  5. NEURONTIN [Suspect]
     Indication: DIABETIC NEUROPATHY
     Dosage: 300 MG, 4X/DAY
     Route: 048
  6. VICODIN [Concomitant]
     Indication: BACK PAIN
     Dosage: UNK
  7. JANUVIA [Concomitant]
     Indication: DIABETES MELLITUS
     Dosage: 100 MG, 1X/DAY
  8. NEURONTIN [Suspect]
     Indication: PAIN
     Dosage: 300 MG, 1X/DAY
     Route: 048
     Dates: start: 20090101
  9. AVALIDE [Concomitant]
     Indication: HYPERTENSION
     Dosage: 300/25 MG, UNK
  10. LASIX [Concomitant]
     Dosage: 40 MG, 1X/DAY
  11. OXYGEN [Concomitant]
     Dosage: 2L, UNK

REACTIONS (4)
  - DRUG INEFFECTIVE [None]
  - FATIGUE [None]
  - PNEUMOTHORAX [None]
  - CHRONIC OBSTRUCTIVE PULMONARY DISEASE [None]
